FAERS Safety Report 15979244 (Version 2)
Quarter: 2019Q2

REPORT INFORMATION
  Report Type: Spontaneous
  Country: US (occurrence: US)
  Receive Date: 20190219
  Receipt Date: 20190409
  Transmission Date: 20190711
  Serious: No
  Sender: FDA-Public Use
  Company Number: US-009507513-1902USA006245

PATIENT
  Age: 19 Year
  Sex: Female
  Weight: 98.41 kg

DRUGS (2)
  1. NEXPLANON [Suspect]
     Active Substance: ETONOGESTREL
     Dosage: ONE IMPLANT
     Route: 059
     Dates: start: 20151216, end: 20190212
  2. NEXPLANON [Suspect]
     Active Substance: ETONOGESTREL
     Dosage: ONE IMPLANT
     Route: 059
     Dates: start: 20120218, end: 20151216

REACTIONS (7)
  - Implant site fibrosis [Unknown]
  - Weight fluctuation [Unknown]
  - Surgery [Recovered/Resolved]
  - Inappropriate schedule of product administration [Unknown]
  - Inappropriate schedule of product administration [Unknown]
  - Device deployment issue [Recovered/Resolved]
  - Complication associated with device [Recovered/Resolved]

NARRATIVE: CASE EVENT DATE: 20120218
